FAERS Safety Report 9206063 (Version 1)
Quarter: 2013Q2

REPORT INFORMATION
  Report Type: Report from Study
  Country: US (occurrence: US)
  Receive Date: 20130403
  Receipt Date: 20130403
  Transmission Date: 20140414
  Serious: Yes (Other)
  Sender: FDA-Public Use
  Company Number: US-JNJFOC-20130318384

PATIENT
  Sex: 0

DRUGS (2)
  1. REMICADE [Suspect]
     Indication: CROHN^S DISEASE
     Route: 042
  2. CLARITIN [Concomitant]
     Indication: PREMEDICATION
     Route: 065

REACTIONS (2)
  - Arthropathy [Unknown]
  - Neuropathy peripheral [Unknown]
